FAERS Safety Report 10488179 (Version 1)
Quarter: 2014Q4

REPORT INFORMATION
  Report Type: Spontaneous
  Country: US (occurrence: US)
  Receive Date: 20141002
  Receipt Date: 20141002
  Transmission Date: 20150528
  Serious: No
  Sender: FDA-Public Use
  Company Number: US-TEVA-469870USA

PATIENT
  Sex: Female

DRUGS (1)
  1. CARBAMAZEPINE. [Suspect]
     Active Substance: CARBAMAZEPINE

REACTIONS (5)
  - Malaise [Unknown]
  - Gastric dilatation [Unknown]
  - Muscular weakness [Unknown]
  - Arthralgia [Unknown]
  - Weight increased [Unknown]
